FAERS Safety Report 20306095 (Version 2)
Quarter: 2022Q4

REPORT INFORMATION
  Report Type: Spontaneous
  Country: US (occurrence: US)
  Receive Date: 20220106
  Receipt Date: 20221109
  Transmission Date: 20230113
  Serious: Yes (Other)
  Sender: FDA-Public Use
  Company Number: US-VERTEX PHARMACEUTICALS-2021-020420

PATIENT
  Age: 18 Year
  Sex: Female

DRUGS (5)
  1. TRIKAFTA [Suspect]
     Active Substance: ELEXACAFTOR\IVACAFTOR\TEZACAFTOR
     Indication: Cystic fibrosis
     Dosage: 100 MG ELEXA/ 100 MG TEZA/ 150 MG IVA IN AM AND 150 MG IVA IN PM
     Route: 048
     Dates: start: 202003
  2. TACROLIMUS [Suspect]
     Active Substance: TACROLIMUS
     Indication: Product used for unknown indication
     Dosage: 1.5 MG, BID
     Route: 065
     Dates: end: 2020
  3. TACROLIMUS [Suspect]
     Active Substance: TACROLIMUS
     Dosage: REDUCED BY 50%
     Route: 065
     Dates: start: 2020, end: 2020
  4. TACROLIMUS [Suspect]
     Active Substance: TACROLIMUS
     Dosage: 1.5 MG, BID
     Route: 065
     Dates: start: 2020
  5. MORPHINE [Concomitant]
     Active Substance: MORPHINE
     Indication: Dyspnoea

REACTIONS (9)
  - Immunosuppressant drug level increased [Recovered/Resolved]
  - Hepatic cirrhosis [Unknown]
  - Hepatitis chronic active [Unknown]
  - Alloimmune hepatitis [Unknown]
  - Platelet count decreased [Unknown]
  - International normalised ratio increased [Unknown]
  - Liver transplant rejection [Unknown]
  - Aspartate aminotransferase increased [Recovered/Resolved]
  - Alanine aminotransferase increased [Recovered/Resolved]

NARRATIVE: CASE EVENT DATE: 20200101
